FAERS Safety Report 8493354-0 (Version None)
Quarter: 2012Q3

REPORT INFORMATION
  Report Type: 
  Country: None (occurrence: None)
  Receive Date: 20120706
  Receipt Date: 20120627
  Transmission Date: 20120928
  Serious: Yes (Other)
  Sender: FDA-Public Use
  Company Number: US-ELI_LILLY_AND_COMPANY-US201204007227

PATIENT
  Sex: Female
  Weight: 62.585 kg

DRUGS (16)
  1. REFRESH PM [Concomitant]
     Dosage: UNK, EACH MORNING
     Route: 047
     Dates: start: 20110729
  2. LANTUS [Concomitant]
     Dosage: 10 U, EACH MORNING
  3. WESTCORT [Concomitant]
     Dosage: UNK, BID
     Dates: start: 20120125
  4. LOTEMAX [Concomitant]
     Dosage: UNK
     Route: 047
     Dates: start: 20120309
  5. HUMALOG [Suspect]
     Indication: TYPE 1 DIABETES MELLITUS
     Dosage: UNK UNK, PRN
     Route: 058
     Dates: start: 19960101
  6. TRENTAL [Concomitant]
     Dosage: 400 MG, TID
     Dates: start: 20111207
  7. FOSAMAX [Concomitant]
     Dosage: 70 MG, WEEKLY (1/W)
     Dates: start: 20111207
  8. ASACOL                                  /USA/ [Concomitant]
     Dosage: 800 MG, BID
     Dates: start: 20100810
  9. HUMALOG [Suspect]
     Dosage: UNK, PRN
  10. BIOTIN [Concomitant]
     Dosage: 1000 MG, QD
     Dates: start: 20090826
  11. GLUCAGON [Suspect]
     Dosage: UNK UNK, PRN
     Dates: start: 20080101
  12. THERATEARS [Concomitant]
     Dosage: UNK UNK, QD
     Route: 047
     Dates: start: 20110729
  13. MAGNESIUM SULFATE [Concomitant]
     Dosage: UNK, QD
     Dates: start: 20110709
  14. M.V.I. [Concomitant]
     Dosage: UNK, QD
     Dates: start: 20080128
  15. CALCIUM + VITAMIN D [Concomitant]
     Dosage: UNK
     Dates: start: 20100810
  16. ASPIRIN [Concomitant]
     Dosage: 8 MG, QD
     Dates: start: 20050310

REACTIONS (3)
  - WRONG TECHNIQUE IN DRUG USAGE PROCESS [None]
  - EXPIRED DRUG ADMINISTERED [None]
  - HYPOGLYCAEMIA UNAWARENESS [None]
